FAERS Safety Report 7797167-4 (Version None)
Quarter: 2011Q4

REPORT INFORMATION
  Report Type: 
  Country: None (occurrence: None)
  Receive Date: 20111003
  Receipt Date: 20110921
  Transmission Date: 20120403
  Serious: Yes (Hospitalization)
  Sender: FDA-Public Use
  Company Number: 2011MA014462

PATIENT
  Age: 10 Year
  Sex: Female

DRUGS (3)
  1. CLOXACILLIN SODIUM [Suspect]
     Indication: PROPHYLAXIS
     Dosage: 2 G; IV
     Route: 042
     Dates: start: 20110730, end: 20110730
  2. FEVERALL [Suspect]
     Indication: PROPHYLAXIS
     Dosage: 1 G; IV
     Route: 042
     Dates: start: 20110730, end: 20110730
  3. ONDANSETRON [Suspect]
     Indication: NAUSEA
     Dosage: 4 MG; IV
     Route: 042
     Dates: start: 20110730, end: 20110730

REACTIONS (1)
  - ANAPHYLACTIC REACTION [None]
